FAERS Safety Report 19304204 (Version 10)
Quarter: 2021Q4

REPORT INFORMATION
  Report Type: Spontaneous
  Country: GB (occurrence: GB)
  Receive Date: 20210525
  Receipt Date: 20211231
  Transmission Date: 20220304
  Serious: Yes (Other)
  Sender: FDA-Public Use
  Company Number: GB-BRISTOL-MYERS SQUIBB COMPANY-BMS-2021-049868

PATIENT
  Age: 32 Year
  Sex: Male

DRUGS (4)
  1. HYDREA [Suspect]
     Active Substance: HYDROXYUREA
     Indication: Product used for unknown indication
     Dosage: UNK
     Route: 065
  2. HYDREA [Suspect]
     Active Substance: HYDROXYUREA
     Dosage: UNK
     Route: 065
  3. CLOZARIL [Suspect]
     Active Substance: CLOZAPINE
     Indication: Schizophrenia
     Dosage: 245 UNITS NOS, UNK
     Route: 048
     Dates: start: 20050110
  4. CLOZARIL [Suspect]
     Active Substance: CLOZAPINE
     Dosage: 245 UNITS NOS, UNK
     Route: 048
     Dates: start: 20061229, end: 20210505

REACTIONS (5)
  - Anaemia [Not Recovered/Not Resolved]
  - Lymphocyte count increased [Unknown]
  - Differential white blood cell count abnormal [Not Recovered/Not Resolved]
  - Full blood count abnormal [Not Recovered/Not Resolved]
  - Mean cell volume increased [Recovering/Resolving]

NARRATIVE: CASE EVENT DATE: 20170215
